FAERS Safety Report 8776438 (Version 2)
Quarter: 2013Q1

REPORT INFORMATION
  Report Type: Spontaneous
  Country: BR (occurrence: BR)
  Receive Date: 20120910
  Receipt Date: 20130321
  Transmission Date: 20140127
  Serious: Yes (Hospitalization)
  Sender: FDA-Public Use
  Company Number: PHHY2012BR078068

PATIENT
  Sex: Female
  Weight: 72 kg

DRUGS (11)
  1. DIOVAN [Suspect]
     Indication: BLOOD PRESSURE ABNORMAL
     Dosage: 1 DF (160MG) DAILY
  2. DIOVAN [Suspect]
     Dosage: 2 DF (160 MG), DAILY
  3. DIOVAN AMLO FIX [Suspect]
     Indication: HYPERTENSION
     Dosage: 1 DF (320 MG VALS + 5 MG AMLO), DAILY
     Route: 048
  4. ATENOLOL [Suspect]
     Indication: BLOOD PRESSURE
     Dosage: 1 DF, DAILY
  5. FLUOXETINE [Suspect]
     Indication: DEPRESSION
     Dosage: 01 DF, DAILY
  6. GLIFAGE [Suspect]
     Indication: DIABETES MELLITUS
     Dosage: 1 DF, DAILY
  7. INDAPAMIDE [Suspect]
     Indication: BLOOD PRESSURE
     Dosage: 1 DF, DAILY
  8. ABLOK [Suspect]
     Indication: BLOOD PRESSURE
     Dosage: 50 MG, DAILY
  9. ATENSINA [Suspect]
     Indication: BLOOD PRESSURE
     Dosage: 200 MG, DAILY
  10. SIMVASTATIN [Concomitant]
     Indication: BLOOD CHOLESTEROL INCREASED
     Dosage: 1 DF, QD (20 MG)
     Route: 048
  11. RIVOTRIL [Concomitant]
     Indication: DEPRESSION
     Dosage: 1 DF, QD (20 MG)
     Route: 048

REACTIONS (3)
  - Diabetes mellitus [Recovering/Resolving]
  - Blood pressure fluctuation [Recovered/Resolved]
  - Depression [Recovering/Resolving]
